FAERS Safety Report 11688694 (Version 1)
Quarter: 2015Q4

REPORT INFORMATION
  Report Type: Spontaneous
  Country: US (occurrence: US)
  Receive Date: 20151102
  Receipt Date: 20151102
  Transmission Date: 20160304
  Serious: No
  Sender: FDA-Public Use
  Company Number: US-ASTRAZENECA-2015SF05150

PATIENT
  Age: 51 Year
  Sex: Female

DRUGS (4)
  1. CALCIUM [Concomitant]
     Active Substance: CALCIUM
  2. VITAMIN D [Concomitant]
     Active Substance: CHOLECALCIFEROL
  3. IBRANCE [Suspect]
     Active Substance: PALBOCICLIB
     Indication: BREAST CANCER FEMALE
     Dosage: 125 MG DAILY FOR 21 DAYS THEN OFF FOR 7 DAYS
     Route: 048
  4. FASLODEX [Suspect]
     Active Substance: FULVESTRANT
     Route: 030

REACTIONS (2)
  - Night sweats [Unknown]
  - Pain [Unknown]
